FAERS Safety Report 4356737-6 (Version None)
Quarter: 2004Q2

REPORT INFORMATION
  Report Type: 
  Country: None (occurrence: None)
  Receive Date: 20040507
  Receipt Date: 20040331
  Transmission Date: 20050107
  Serious: Yes (Hospitalization, Other)
  Sender: FDA-Public Use
  Company Number: KII-2004-0010019

PATIENT
  Age: 42 Year
  Sex: Male

DRUGS (2)
  1. OXYCONTIN [Suspect]
     Indication: DRUG USE FOR UNKNOWN INDICATION
     Dosage: UNK, UNK, UNK
     Route: 065
  2. BENZODIAZEPINE DERIVATIVES [Suspect]
     Indication: DRUG USE FOR UNKNOWN INDICATION
     Dosage: UNK, UNK, UNK
     Route: 065

REACTIONS (34)
  - ABNORMAL BEHAVIOUR [None]
  - AMNESIA [None]
  - ASTHENIA [None]
  - BLOOD CALCIUM ABNORMAL [None]
  - BLOOD CREATINE PHOSPHOKINASE INCREASED [None]
  - BLOOD CREATININE INCREASED [None]
  - BLOOD GLUCOSE INCREASED [None]
  - BLOOD POTASSIUM DECREASED [None]
  - BLOOD UREA INCREASED [None]
  - COMA [None]
  - DEHYDRATION [None]
  - DRUG ABUSER [None]
  - DRUG SCREEN POSITIVE [None]
  - DRUG WITHDRAWAL SYNDROME [None]
  - DYSKINESIA [None]
  - FAECAL INCONTINENCE [None]
  - FLAT AFFECT [None]
  - HEPATITIS B [None]
  - HEPATITIS C [None]
  - HYPERTENSION [None]
  - INAPPROPRIATE AFFECT [None]
  - INTENTIONAL MISUSE [None]
  - MYDRIASIS [None]
  - NEUROLOGICAL EXAMINATION ABNORMAL [None]
  - PROTEIN TOTAL INCREASED [None]
  - PUPILLARY REFLEX IMPAIRED [None]
  - RENAL DISORDER [None]
  - RESPIRATORY RATE INCREASED [None]
  - SCAR [None]
  - SINUS TACHYCARDIA [None]
  - SPEECH DISORDER [None]
  - TREMOR [None]
  - URINARY INCONTINENCE [None]
  - WHITE BLOOD CELL DISORDER [None]
